FAERS Safety Report 14564025 (Version 1)
Quarter: 2018Q1

REPORT INFORMATION
  Report Type: Spontaneous
  Country: CN (occurrence: CN)
  Receive Date: 20180222
  Receipt Date: 20180222
  Transmission Date: 20180509
  Serious: Yes (Other)
  Sender: FDA-Public Use
  Company Number: CN-009507513-1802CHN008201

PATIENT
  Age: 83 Year
  Sex: Female

DRUGS (1)
  1. IMIPENEM AND CILASTATIN [Suspect]
     Active Substance: CILASTATIN SODIUM\IMIPENEM
     Indication: ACINETOBACTER INFECTION
     Dosage: UNK

REACTIONS (1)
  - Pathogen resistance [Unknown]
